FAERS Safety Report 7265213-2 (Version None)
Quarter: 2011Q1

REPORT INFORMATION
  Report Type: 
  Country: None (occurrence: None)
  Receive Date: 20110131
  Receipt Date: 20110125
  Transmission Date: 20110831
  Serious: Yes (Hospitalization, Other)
  Sender: FDA-Public Use
  Company Number: CA-ABBOTT-11P-028-0699350-00

PATIENT
  Sex: Female
  Weight: 52.21 kg

DRUGS (24)
  1. HUMIRA [Suspect]
     Indication: CROHN'S DISEASE
     Route: 058
     Dates: start: 20090724, end: 20101201
  2. EURO SENNA [Concomitant]
     Indication: CONSTIPATION
  3. NOVO DOCUSATE SODIUM [Concomitant]
     Indication: CONSTIPATION
     Route: 048
  4. CALCIUM W/VITAMIN D [Concomitant]
     Indication: BLOOD CALCIUM
     Dosage: 500MG + 400 IU: BID
     Route: 048
  5. MAGISTRALE [Concomitant]
     Indication: ANAL INFLAMMATION
     Route: 061
  6. ATIVAN [Concomitant]
     Indication: ANXIETY
     Route: 048
  7. VENTOLIN [Concomitant]
     Indication: CHRONIC OBSTRUCTIVE PULMONARY DISEASE
  8. RATIO-CYCLOBENZAPRINE [Concomitant]
     Indication: BACK PAIN
     Route: 048
     Dates: start: 19950101
  9. PROCHLORPERAZINE [Concomitant]
     Indication: NAUSEA
     Route: 048
  10. HYDROMORPHONE HCL [Concomitant]
     Indication: PAIN
     Route: 048
  11. NOVO GESIC [Concomitant]
     Indication: PYREXIA
  12. ADVAIR [Concomitant]
     Indication: CHRONIC OBSTRUCTIVE PULMONARY DISEASE
     Dosage: DISKUS
     Route: 055
  13. RATIO VENLAFAXINE [Concomitant]
     Indication: ANTIDEPRESSANT THERAPY
     Route: 048
     Dates: start: 20070101
  14. NOVO GESIC [Concomitant]
     Indication: PAIN
     Route: 048
  15. ALVESCO [Concomitant]
     Indication: CHRONIC OBSTRUCTIVE PULMONARY DISEASE
     Route: 055
  16. DILAUDID [Concomitant]
     Indication: PAIN
     Route: 048
  17. RAN RABEPRAZOLE [Concomitant]
     Indication: GASTRIC DISORDER
     Route: 048
  18. APO LOPERAMIDE [Concomitant]
     Indication: DIARRHOEA
     Route: 048
  19. CORTEF [Concomitant]
     Indication: PRODUCT USED FOR UNKNOWN INDICATION
     Route: 048
  20. EMOCORT [Concomitant]
     Indication: ECZEMA
     Route: 061
  21. AVELOX [Concomitant]
     Indication: ANTIBIOTIC PROPHYLAXIS
     Route: 048
  22. HYDROMORPHONE HCL [Concomitant]
     Route: 048
  23. HYDROMORPHONE HCL [Concomitant]
     Route: 048
  24. RIVA OXAZEPAM [Concomitant]
     Indication: SLEEP DISORDER THERAPY
     Route: 048

REACTIONS (10)
  - PERINEAL ABSCESS [None]
  - ILL-DEFINED DISORDER [None]
  - FURUNCLE [None]
  - TOXICITY TO VARIOUS AGENTS [None]
  - PARALYSIS [None]
  - ABSCESS OF EYELID [None]
  - STAPHYLOCOCCAL INFECTION [None]
  - AMNESIA [None]
  - RESPIRATORY ARREST [None]
  - NEUROLOGICAL SYMPTOM [None]
